FAERS Safety Report 5216599-1 (Version None)
Quarter: 2006Q4

REPORT INFORMATION
  Report Type: 
  Country: None (occurrence: None)
  Receive Date: 20061130
  Receipt Date: 20060807
  Transmission Date: 20070319
  Serious: Yes (Other)
  Sender: FDA-Public Use
  Company Number: US200608002465

PATIENT
  Sex: Male
  Weight: 124.3 kg

DRUGS (1)
  1. ZYPREXA [Suspect]
     Dosage: 20 MG
     Dates: start: 19990826, end: 20050516

REACTIONS (3)
  - DIABETES MELLITUS [None]
  - PANCREATITIS [None]
  - RENAL DISORDER [None]
